FAERS Safety Report 8298283-3 (Version None)
Quarter: 2012Q2

REPORT INFORMATION
  Report Type: 
  Country: None (occurrence: None)
  Receive Date: 20120419
  Receipt Date: 20120127
  Transmission Date: 20120825
  Serious: No
  Sender: FDA-Public Use
  Company Number: US-BRISTOL-MYERS SQUIBB COMPANY-16356396

PATIENT
  Age: 49 Year
  Sex: Male

DRUGS (2)
  1. OXYCODONE HCL [Concomitant]
  2. YERVOY [Suspect]
     Indication: METASTATIC MALIGNANT MELANOMA
     Dosage: THERAPY DARES:08NOV11,30NOV11,21DEC2011
     Route: 042
     Dates: start: 20111018

REACTIONS (2)
  - HYPOPHYSITIS [None]
  - THYROID FUNCTION TEST ABNORMAL [None]
